FAERS Safety Report 14082058 (Version 2)
Quarter: 2017Q4

REPORT INFORMATION
  Report Type: Spontaneous
  Country: BR (occurrence: BR)
  Receive Date: 20171013
  Receipt Date: 20171017
  Transmission Date: 20180321
  Serious: Yes (Other)
  Sender: FDA-Public Use
  Company Number: BR-009507513-1710BRA003735

PATIENT
  Age: 18 Year
  Sex: Female
  Weight: 53.5 kg

DRUGS (3)
  1. NUVARING [Suspect]
     Active Substance: ETHINYL ESTRADIOL\ETONOGESTREL
     Dosage: 3 WEEKS WITH THE VAGINAL RING AND A WEEK OF FREE RING INTERVAL WITHOUT THE RING
     Route: 067
     Dates: start: 20170929
  2. NUVARING [Suspect]
     Active Substance: ETHINYL ESTRADIOL\ETONOGESTREL
     Dosage: 3 WEEKS WITH THE VAGINAL RING AND A WEEK OF FREE RING INTERVAL WITHOUT THE RING
     Route: 067
     Dates: start: 201709, end: 20170929
  3. NUVARING [Suspect]
     Active Substance: ETHINYL ESTRADIOL\ETONOGESTREL
     Indication: CONTRACEPTION
     Dosage: 3 WEEKS WITH THE VAGINAL RING AND A WEEK OF FREE RING INTERVAL WITHOUT THE RING
     Route: 067
     Dates: start: 2015

REACTIONS (5)
  - Gardnerella infection [Unknown]
  - Medical device site discomfort [Recovered/Resolved]
  - Device difficult to use [Recovered/Resolved]
  - Device breakage [Recovered/Resolved]
  - Gardnerella infection [Not Recovered/Not Resolved]

NARRATIVE: CASE EVENT DATE: 201707
